FAERS Safety Report 17227102 (Version 1)
Quarter: 2020Q1

REPORT INFORMATION
  Report Type: Spontaneous
  Country: FR (occurrence: FR)
  Receive Date: 20200103
  Receipt Date: 20200103
  Transmission Date: 20200409
  Serious: Yes (Hospitalization)
  Sender: FDA-Public Use
  Company Number: FR-BRISTOL-MYERS SQUIBB COMPANY-BMS-2019-125073

PATIENT
  Age: 57 Year
  Sex: Female
  Weight: 61 kg

DRUGS (6)
  1. OPDIVO [Suspect]
     Active Substance: NIVOLUMAB
     Indication: BRONCHIAL CARCINOMA
     Dosage: NR
     Route: 042
     Dates: start: 201703, end: 20190723
  2. NEO-MERCAZOLE [Concomitant]
     Active Substance: CARBIMAZOLE
     Indication: PRODUCT USED FOR UNKNOWN INDICATION
     Route: 048
  3. VOGALENE [Concomitant]
     Active Substance: METOPIMAZINE
     Indication: PRODUCT USED FOR UNKNOWN INDICATION
     Route: 048
  4. TIORFAN [Concomitant]
     Active Substance: RACECADOTRIL
     Indication: PRODUCT USED FOR UNKNOWN INDICATION
     Route: 048
  5. SOLUPRED [METHYLPREDNISOLONE SODIUM SUCCINATE] [Concomitant]
     Active Substance: METHYLPREDNISOLONE SODIUM SUCCINATE
     Indication: PRODUCT USED FOR UNKNOWN INDICATION
     Route: 048
  6. EUPANTOL [Concomitant]
     Active Substance: PANTOPRAZOLE SODIUM
     Indication: PRODUCT USED FOR UNKNOWN INDICATION
     Route: 048

REACTIONS (3)
  - Vomiting [Recovered/Resolved]
  - Diarrhoea [Recovered/Resolved]
  - Chronic gastritis [Recovered/Resolved]

NARRATIVE: CASE EVENT DATE: 201808
